FAERS Safety Report 12776026 (Version 1)
Quarter: 2016Q3

REPORT INFORMATION
  Report Type: Report from Study
  Country: DE (occurrence: DE)
  Receive Date: 20160923
  Receipt Date: 20160923
  Transmission Date: 20161109
  Serious: Yes (Hospitalization)
  Sender: FDA-Public Use
  Company Number: US-ASTRAZENECA-2016SF00378

PATIENT
  Sex: Male

DRUGS (9)
  1. SYNAGIS [Suspect]
     Active Substance: PALIVIZUMAB
     Indication: ANTIVIRAL PROPHYLAXIS
     Dosage: 100.0MG ONCE/SINGLE ADMINISTRATION
     Route: 030
     Dates: start: 20081022, end: 20081022
  2. SYNAGIS [Suspect]
     Active Substance: PALIVIZUMAB
     Indication: ANTIVIRAL PROPHYLAXIS
     Dosage: 100.0MG ONCE/SINGLE ADMINISTRATION
     Route: 030
     Dates: start: 20091216, end: 20091216
  3. SYNAGIS [Suspect]
     Active Substance: PALIVIZUMAB
     Indication: ANTIVIRAL PROPHYLAXIS
     Dosage: 100.0MG ONCE/SINGLE ADMINISTRATION
     Route: 030
     Dates: start: 20081118, end: 20081118
  4. SYNAGIS [Suspect]
     Active Substance: PALIVIZUMAB
     Indication: ANTIVIRAL PROPHYLAXIS
     Dosage: 60.0MG ONCE/SINGLE ADMINISTRATION
     Route: 030
     Dates: start: 20080207, end: 20080207
  5. SYNAGIS [Suspect]
     Active Substance: PALIVIZUMAB
     Indication: ANTIVIRAL PROPHYLAXIS
     Dosage: 75.0MG ONCE/SINGLE ADMINISTRATION
     Route: 030
     Dates: start: 20080306, end: 20080306
  6. SYNAGIS [Suspect]
     Active Substance: PALIVIZUMAB
     Indication: ANTIVIRAL PROPHYLAXIS
     Dosage: 100.0MG ONCE/SINGLE ADMINISTRATION
     Route: 030
     Dates: start: 20090113, end: 20090113
  7. SYNAGIS [Suspect]
     Active Substance: PALIVIZUMAB
     Indication: ANTIVIRAL PROPHYLAXIS
     Dosage: 90.0MG ONCE/SINGLE ADMINISTRATION
     Route: 030
     Dates: start: 20080403, end: 20080403
  8. SYNAGIS [Suspect]
     Active Substance: PALIVIZUMAB
     Indication: ANTIVIRAL PROPHYLAXIS
     Dosage: 100.0MG ONCE/SINGLE ADMINISTRATION
     Route: 030
     Dates: start: 20090210, end: 20090210
  9. SYNAGIS [Suspect]
     Active Substance: PALIVIZUMAB
     Indication: ANTIVIRAL PROPHYLAXIS
     Dosage: 48.0MG ONCE/SINGLE ADMINISTRATION
     Route: 030
     Dates: start: 20080110, end: 20080110

REACTIONS (1)
  - Bronchitis [Unknown]
